FAERS Safety Report 16601671 (Version 1)
Quarter: 2019Q3

REPORT INFORMATION
  Report Type: Spontaneous
  Country: US (occurrence: US)
  Receive Date: 20190719
  Receipt Date: 20190719
  Transmission Date: 20191004
  Serious: No
  Sender: FDA-Public Use
  Company Number: US-TEVA-2019-US-1078942

PATIENT
  Sex: Female

DRUGS (1)
  1. EPINEPHRINE. [Suspect]
     Active Substance: EPINEPHRINE
     Dosage: EPINEPHRINE INJECTION AUTO-INJECTOR
     Route: 065

REACTIONS (3)
  - Pruritus [Unknown]
  - Palpitations [Unknown]
  - Rubber sensitivity [Unknown]
